FAERS Safety Report 11844344 (Version 1)
Quarter: 2015Q4

REPORT INFORMATION
  Report Type: Spontaneous
  Country: US (occurrence: None)
  Receive Date: 20151216
  Receipt Date: 20151216
  Transmission Date: 20160305
  Serious: No
  Sender: FDA-Public Use
  Company Number: None

PATIENT
  Age: 79 Year
  Sex: Male
  Weight: 104.33 kg

DRUGS (1)
  1. HUMIRA [Suspect]
     Active Substance: ADALIMUMAB
     Indication: POLYARTHRITIS
     Dosage: HUMIRA 40MG PEN KIT INJECT EVERY TWO WEEKS
     Route: 058
     Dates: start: 20150818, end: 20151202

REACTIONS (1)
  - Rash [None]

NARRATIVE: CASE EVENT DATE: 20151211
